FAERS Safety Report 7000609-5 (Version None)
Quarter: 2010Q3

REPORT INFORMATION
  Report Type: 
  Country: None (occurrence: None)
  Receive Date: 20100920
  Receipt Date: 20100910
  Transmission Date: 20110219
  Serious: Yes (Death, Hospitalization, Other)
  Sender: FDA-Public Use
  Company Number: US-GENZYME-CLOF-1001178

PATIENT
  Age: 44 Year
  Sex: Female
  Weight: 51.6 kg

DRUGS (3)
  1. CLOLAR [Suspect]
     Indication: ACUTE LYMPHOCYTIC LEUKAEMIA
     Dosage: 30 MG, QDX5
     Route: 042
     Dates: start: 20100819, end: 20100823
  2. ETOPOSIDE [Suspect]
     Indication: ACUTE LYMPHOCYTIC LEUKAEMIA
     Dosage: 150 MG, QDX5
     Route: 042
     Dates: start: 20100818, end: 20100822
  3. MITOXANTRONE [Suspect]
     Indication: ACUTE LYMPHOCYTIC LEUKAEMIA
     Dosage: 12 MG, QDX3
     Route: 042
     Dates: start: 20100818, end: 20100820

REACTIONS (9)
  - ABDOMINAL PAIN [None]
  - CHOLECYSTITIS [None]
  - DEHYDRATION [None]
  - DIARRHOEA [None]
  - HYPOTENSION [None]
  - LIVER FUNCTION TEST ABNORMAL [None]
  - MUCOSAL INFLAMMATION [None]
  - PYREXIA [None]
  - SEPSIS [None]
